FAERS Safety Report 4802407-7 (Version None)
Quarter: 2005Q4

REPORT INFORMATION
  Report Type: 
  Country: None (occurrence: None)
  Receive Date: 20051014
  Receipt Date: 20041108
  Transmission Date: 20060501
  Serious: Yes (Other)
  Sender: FDA-Public Use
  Company Number: 2004068408

PATIENT
  Age: 53 Year
  Sex: Male

DRUGS (10)
  1. NEURONTIN [Suspect]
     Indication: NEUROPATHY PERIPHERAL
     Dosage: 2700 MG (900 MG, 3 IN 1 D), ORAL
     Route: 048
     Dates: start: 20030328
  2. PIOGLITAZONE HCL [Suspect]
     Indication: DIABETES MELLITUS
     Dosage: 45 MG (45 MG, 1 IN 1 D), ORAL
     Route: 048
     Dates: start: 20031008
  3. PAROXETINE HCL [Concomitant]
  4. QUINAPRIL HCL [Concomitant]
  5. FUROSEMIDE [Concomitant]
  6. CLOPIDOGREL BISULFATE [Concomitant]
  7. NIFEDIPINE [Concomitant]
  8. ATORVASTATIN CALCIUM [Concomitant]
  9. FISH OIL (FISH OIL) [Concomitant]
  10. METFORMIN HCL [Concomitant]

REACTIONS (3)
  - CARDIAC FAILURE CONGESTIVE [None]
  - OEDEMA PERIPHERAL [None]
  - PITTING OEDEMA [None]
